FAERS Safety Report 8139484-4 (Version None)
Quarter: 2012Q1

REPORT INFORMATION
  Report Type: 
  Country: None (occurrence: None)
  Receive Date: 20120215
  Receipt Date: 20120213
  Transmission Date: 20120608
  Serious: Yes (Disabling, Other)
  Sender: FDA-Public Use
  Company Number: US-PFIZER INC-2012038857

PATIENT
  Sex: Male

DRUGS (1)
  1. LIPITOR [Suspect]
     Dosage: 80 MG, UNK
     Route: 048

REACTIONS (6)
  - PAIN [None]
  - NEUROPATHY PERIPHERAL [None]
  - HEADACHE [None]
  - GRIP STRENGTH DECREASED [None]
  - FATIGUE [None]
  - MYOPATHY [None]
